FAERS Safety Report 25068225 (Version 1)
Quarter: 2025Q1

REPORT INFORMATION
  Report Type: Spontaneous
  Country: US (occurrence: US)
  Receive Date: 20250312
  Receipt Date: 20250312
  Transmission Date: 20250409
  Serious: Yes (Other)
  Sender: PFIZER
  Company Number: US-PFIZER INC-PV202400080834

PATIENT
  Age: 52 Year
  Sex: Female

DRUGS (1)
  1. TUKYSA [Suspect]
     Active Substance: TUCATINIB
     Indication: Breast cancer metastatic
     Dosage: 150 MG TAKE 1 TABLET BY MOUTH TWICE A DAY
     Route: 048

REACTIONS (2)
  - Second primary malignancy [Unknown]
  - Brain neoplasm malignant [Unknown]
